FAERS Safety Report 9135754 (Version 1)
Quarter: 2013Q1

REPORT INFORMATION
  Report Type: Spontaneous
  Country: US (occurrence: US)
  Receive Date: 20130304
  Receipt Date: 20130304
  Transmission Date: 20140127
  Serious: Yes (Hospitalization, Other)
  Sender: FDA-Public Use
  Company Number: US-WATSON-2012-19981

PATIENT
  Age: 70 Year
  Sex: Male

DRUGS (1)
  1. MORPHINE SULFATE (UNKNOWN) [Suspect]
     Indication: BACK PAIN
     Dosage: 28 MG, UNK
     Route: 037

REACTIONS (3)
  - Muscular weakness [Not Recovered/Not Resolved]
  - Urinary retention [Recovered/Resolved]
  - Injection site granuloma [Unknown]
